FAERS Safety Report 8795491 (Version 3)
Quarter: 2014Q3

REPORT INFORMATION
  Report Type: Report from Study
  Country: US (occurrence: US)
  Receive Date: 20120917
  Receipt Date: 20140901
  Transmission Date: 20150326
  Serious: Yes (Death)
  Sender: FDA-Public Use
  Company Number: US-ROCHE-1129271

PATIENT
  Age: 69 Year
  Sex: Male

DRUGS (8)
  1. AVASTIN [Suspect]
     Active Substance: BEVACIZUMAB
     Indication: COLON CANCER
     Route: 042
     Dates: start: 20040310, end: 20040310
  2. AVASTIN [Suspect]
     Active Substance: BEVACIZUMAB
     Indication: COLON CANCER
  3. 5-FU [Concomitant]
     Active Substance: FLUOROURACIL
     Route: 042
  4. AVASTIN [Suspect]
     Active Substance: BEVACIZUMAB
     Indication: COLORECTAL CANCER
  5. LEUCOVORIN [Concomitant]
     Active Substance: LEUCOVORIN
     Route: 065
  6. AVASTIN [Suspect]
     Active Substance: BEVACIZUMAB
     Indication: RECTOSIGMOID CANCER
  7. OXALIPLATIN. [Concomitant]
     Active Substance: OXALIPLATIN
     Route: 065
  8. 5-FU [Concomitant]
     Active Substance: FLUOROURACIL
     Route: 042

REACTIONS (1)
  - Colon cancer [Fatal]

NARRATIVE: CASE EVENT DATE: 20040312
